FAERS Safety Report 5512624-9 (Version None)
Quarter: 2007Q4

REPORT INFORMATION
  Report Type: 
  Country: None (occurrence: None)
  Receive Date: 20071112
  Receipt Date: 20071101
  Transmission Date: 20080405
  Serious: Yes (Hospitalization)
  Sender: FDA-Public Use
  Company Number: JP-JNJFOC-20071007529

PATIENT
  Sex: Female
  Weight: 51 kg

DRUGS (7)
  1. REMICADE [Suspect]
     Route: 042
  2. REMICADE [Suspect]
     Route: 042
  3. REMICADE [Suspect]
     Indication: RHEUMATOID ARTHRITIS
     Route: 042
  4. METHOTREXATE [Suspect]
     Indication: RHEUMATOID ARTHRITIS
     Route: 048
  5. ISCOTIN [Concomitant]
     Indication: ANTIBIOTIC PROPHYLAXIS
  6. VOLTAREN [Concomitant]
     Indication: RHEUMATOID ARTHRITIS
  7. CI PLUS EPHE GYPSU-SUPO [Concomitant]
     Indication: RHEUMATOID ARTHRITIS

REACTIONS (2)
  - ENTEROBACTER INFECTION [None]
  - PNEUMOCYSTIS JIROVECI PNEUMONIA [None]
